FAERS Safety Report 10614592 (Version 1)
Quarter: 2014Q4

REPORT INFORMATION
  Report Type: Spontaneous
  Country: GR (occurrence: GR)
  Receive Date: 20141130
  Receipt Date: 20141130
  Transmission Date: 20150529
  Serious: Yes (Hospitalization)
  Sender: FDA-Public Use
  Company Number: PHHY2014GR151786

PATIENT
  Age: 65 Year
  Sex: Male

DRUGS (1)
  1. METHOTREXATE [Suspect]
     Active Substance: METHOTREXATE
     Indication: PSORIATIC ARTHROPATHY
     Dosage: 15 MG, QW
     Route: 065

REACTIONS (11)
  - Visceral leishmaniasis [Recovered/Resolved]
  - Chills [Recovered/Resolved]
  - Leishmaniasis [Recovered/Resolved]
  - Hepatosplenomegaly [Recovered/Resolved]
  - Histiocytosis haematophagic [Recovered/Resolved]
  - Pyrexia [Recovered/Resolved]
  - Spleen palpable [Recovered/Resolved]
  - Liver palpable [Recovered/Resolved]
  - Hepatomegaly [Recovered/Resolved]
  - Pancytopenia [Recovered/Resolved]
  - Hypergammaglobulinaemia [Recovered/Resolved]
